FAERS Safety Report 20052052 (Version 3)
Quarter: 2022Q1

REPORT INFORMATION
  Report Type: Report from Study
  Country: US (occurrence: US)
  Receive Date: 20211110
  Receipt Date: 20220308
  Transmission Date: 20220423
  Serious: Yes (Hospitalization, Other)
  Sender: FDA-Public Use
  Company Number: US-PHARMACOVIGILANCE-US-KAD-21-00083

PATIENT
  Sex: Male

DRUGS (1)
  1. REZUROCK [Suspect]
     Active Substance: BELUMOSUDIL
     Indication: Chronic graft versus host disease
     Dosage: 200 MILLIGRAM
     Dates: start: 20210909

REACTIONS (12)
  - Cytomegalovirus infection [Unknown]
  - Herpes simplex [Unknown]
  - Oral pain [Unknown]
  - Stomatitis [Unknown]
  - Urinary tract infection viral [Recovered/Resolved]
  - Pneumonia [Recovered/Resolved]
  - Asthenia [Unknown]
  - Decreased appetite [Unknown]
  - Diarrhoea [Unknown]
  - Rash [Unknown]
  - Product dose omission issue [Unknown]
  - Cytomegalovirus infection [Unknown]
